FAERS Safety Report 4696616-8 (Version None)
Quarter: 2005Q2

REPORT INFORMATION
  Report Type: 
  Country: None (occurrence: None)
  Receive Date: 20050620
  Receipt Date: 20041231
  Transmission Date: 20051028
  Serious: Yes (Other)
  Sender: FDA-Public Use
  Company Number: 200419906US

PATIENT
  Age: 62 Year
  Sex: Female
  Weight: 64.5 kg

DRUGS (12)
  1. LANTUS [Suspect]
     Indication: DIABETES MELLITUS INSULIN-DEPENDENT
     Dosage: HS INJ
     Dates: start: 20030901
  2. LANTUS [Suspect]
     Indication: DIABETES MELLITUS INSULIN-DEPENDENT
     Dosage: 6 U HS INJ
  3. LANTUS [Suspect]
     Indication: DIABETES MELLITUS INSULIN-DEPENDENT
     Dosage: 5 U HS INJ
     Dates: start: 20041230
  4. HUMALOG [Concomitant]
  5. FLUTICASONE PROPIONATE (FLONASE) [Concomitant]
  6. IPRATROPIUM BROMIDE (ATROVENT) [Concomitant]
  7. COZAAR [Concomitant]
  8. TENORMIN [Concomitant]
  9. ASPIRIN [Concomitant]
  10. PREVACID [Concomitant]
  11. TEMAZEPAM (RESTORIL) [Concomitant]
  12. CALCIUM GLUCONATE [Concomitant]

REACTIONS (2)
  - HYPOGLYCAEMIA [None]
  - HYPOGLYCAEMIC SEIZURE [None]
